FAERS Safety Report 15081309 (Version 1)
Quarter: 2018Q2

REPORT INFORMATION
  Report Type: Spontaneous
  Country: US (occurrence: US)
  Receive Date: 20180628
  Receipt Date: 20180628
  Transmission Date: 20180711
  Serious: No
  Sender: FDA-Public Use
  Company Number: US-BIOGEN-2018BI00574123

PATIENT
  Sex: Female

DRUGS (1)
  1. TECFIDERA [Suspect]
     Active Substance: DIMETHYL FUMARATE
     Indication: MULTIPLE SCLEROSIS
     Route: 048
     Dates: start: 20180422

REACTIONS (7)
  - Malaise [Unknown]
  - Abdominal pain upper [Recovered/Resolved]
  - Flushing [Unknown]
  - Depression [Unknown]
  - Nausea [Recovered/Resolved]
  - Diarrhoea [Unknown]
  - Dyspepsia [Recovered/Resolved]
